FAERS Safety Report 16153587 (Version 1)
Quarter: 2019Q2

REPORT INFORMATION
  Report Type: Spontaneous
  Country: US (occurrence: US)
  Receive Date: 20190403
  Receipt Date: 20190403
  Transmission Date: 20190711
  Serious: No
  Sender: FDA-Public Use
  Company Number: US-BAYER-2019-064914

PATIENT

DRUGS (1)
  1. CLARITIN-D NOS [Suspect]
     Active Substance: LORATADINE\PSEUDOEPHEDRINE SULFATE
     Dosage: 1 DF

REACTIONS (5)
  - Insomnia [Unknown]
  - Headache [Unknown]
  - Feeling of body temperature change [Unknown]
  - Oropharyngeal pain [Unknown]
  - Tremor [Unknown]
